FAERS Safety Report 6671166-8 (Version None)
Quarter: 2010Q2

REPORT INFORMATION
  Report Type: 
  Country: None (occurrence: None)
  Receive Date: 20100406
  Receipt Date: 20100406
  Transmission Date: 20101027
  Serious: Yes (Life-Threatening, Hospitalization, Disabling)
  Sender: FDA-Public Use
  Company Number: None

PATIENT
  Age: 91 Year
  Sex: Female
  Weight: 55.3388 kg

DRUGS (1)
  1. AMRIX [Suspect]
     Indication: NECK PAIN
     Dosage: 15 MG  (ONE PILL ONLY CAUSED ISSUE)
     Dates: start: 20100315

REACTIONS (4)
  - ANXIETY [None]
  - FEELING ABNORMAL [None]
  - HALLUCINATION [None]
  - MEMORY IMPAIRMENT [None]
